FAERS Safety Report 5547401-6 (Version None)
Quarter: 2007Q4

REPORT INFORMATION
  Report Type: 
  Country: None (occurrence: None)
  Receive Date: 20071211
  Receipt Date: 20071129
  Transmission Date: 20080405
  Serious: Yes (Other)
  Sender: FDA-Public Use
  Company Number: US-PFIZER INC-2007102425

PATIENT
  Sex: Female
  Weight: 61.363 kg

DRUGS (5)
  1. CHANTIX [Suspect]
     Indication: SMOKING CESSATION THERAPY
     Dates: start: 20071111, end: 20071101
  2. GABAPENTIN [Concomitant]
  3. HYDROCODONE BITARTRATE [Concomitant]
     Indication: PAIN
  4. AMBIEN [Concomitant]
     Indication: SLEEP DISORDER
  5. XANAX [Concomitant]
     Indication: ANXIETY

REACTIONS (9)
  - ABNORMAL DREAMS [None]
  - ABNORMAL SLEEP-RELATED EVENT [None]
  - ANGER [None]
  - ANXIETY [None]
  - CONFUSIONAL STATE [None]
  - DEPRESSION [None]
  - FEELING JITTERY [None]
  - NAUSEA [None]
  - PALPITATIONS [None]
